FAERS Safety Report 5094784-X (Version None)
Quarter: 2006Q3

REPORT INFORMATION
  Report Type: 
  Country: None (occurrence: None)
  Receive Date: 20060731
  Receipt Date: 20060414
  Transmission Date: 20061208
  Serious: No
  Sender: FDA-Public Use
  Company Number: 2006PV012020

PATIENT
  Age: 64 Year
  Sex: Female
  Weight: 77.1115 kg

DRUGS (13)
  1. BYETTA [Suspect]
     Indication: DIABETES MELLITUS NON-INSULIN-DEPENDENT
     Dosage: 10 MCG; BID; SC, 5 MCG;BID;SC
     Route: 058
     Dates: start: 20060216, end: 20060320
  2. BYETTA [Suspect]
     Indication: DIABETES MELLITUS NON-INSULIN-DEPENDENT
     Dosage: 10 MCG; BID; SC, 5 MCG;BID;SC
     Route: 058
     Dates: start: 20060321
  3. METFORMIN HCL [Concomitant]
  4. AVANDAMET [Concomitant]
  5. LIPITOR [Concomitant]
  6. ZETIA [Concomitant]
  7. PREMPRO [Concomitant]
  8. ASPIRIN [Concomitant]
  9. CLONIDINE [Concomitant]
  10. FOLBIC [Concomitant]
  11. LISINO/HYDROCHLOROTHIAZIDE [Concomitant]
  12. CENTRUM SILVER [Concomitant]
  13. ULTRABRITE (OMEGA 3) [Concomitant]

REACTIONS (3)
  - ABDOMINAL PAIN [None]
  - INJECTION SITE RASH [None]
  - WEIGHT DECREASED [None]
